FAERS Safety Report 5277836-0 (Version None)
Quarter: 2007Q1

REPORT INFORMATION
  Report Type: 
  Country: None (occurrence: None)
  Receive Date: 20070321
  Receipt Date: 20070314
  Transmission Date: 20070707
  Serious: Yes (Other)
  Sender: FDA-Public Use
  Company Number: 236833

PATIENT
  Age: 77 Year
  Sex: Female

DRUGS (7)
  1. LUCENTIN (RANIBIZUMAB) PWDR + SOLVENT, INJECITON SOLN [Suspect]
     Indication: MACULAR DEGENERATION
     Dosage: 0.5 MG, SINGLE
     Dates: start: 20070214
  2. BETADINE [Concomitant]
  3. LIDOCAINE [Concomitant]
  4. THYROID DRUG NOS (THYROID DRUG NOS) [Concomitant]
  5. VALIUM [Concomitant]
  6. TYLENOL (CAPLET) [Concomitant]
  7. XANAX [Concomitant]

REACTIONS (6)
  - BLOOD PRESSURE FLUCTUATION [None]
  - BLOOD PRESSURE INCREASED [None]
  - HEADACHE [None]
  - POST PROCEDURAL COMPLICATION [None]
  - RHINORRHOEA [None]
  - SINUS HEADACHE [None]
